FAERS Safety Report 18612851 (Version 1)
Quarter: 2020Q4

REPORT INFORMATION
  Report Type: Spontaneous
  Country: IE (occurrence: US)
  Receive Date: 20201214
  Receipt Date: 20201214
  Transmission Date: 20210114
  Serious: No
  Sender: FDA-Public Use
  Company Number: US-ENDO PHARMACEUTICALS INC-2020-001975

PATIENT
  Age: 62 Year
  Sex: Male

DRUGS (3)
  1. TESTIM [Suspect]
     Active Substance: TESTOSTERONE
     Dosage: 50 MG, DAILY (1 TUBE)
     Route: 061
     Dates: start: 201907, end: 201908
  2. TESTIM [Suspect]
     Active Substance: TESTOSTERONE
     Dosage: 50 MG, DAILY (2 TUBES)
     Route: 061
     Dates: end: 201907
  3. TESTIM [Suspect]
     Active Substance: TESTOSTERONE
     Indication: PRODUCT USED FOR UNKNOWN INDICATION
     Dosage: 50 MG, DAILY (2 TUBES)
     Route: 061
     Dates: start: 201909

REACTIONS (1)
  - Blood testosterone increased [Unknown]
